FAERS Safety Report 25720390 (Version 2)
Quarter: 2025Q4

REPORT INFORMATION
  Report Type: Report from Study
  Country: US (occurrence: US)
  Receive Date: 20250825
  Receipt Date: 20251028
  Transmission Date: 20260118
  Serious: Yes (Hospitalization, Other)
  Sender: ABBVIE
  Company Number: US-ABBVIE-6427882

PATIENT
  Age: 70 Year
  Sex: Female

DRUGS (1)
  1. SKYRIZI [Suspect]
     Active Substance: RISANKIZUMAB-RZAA
     Indication: Psoriatic arthropathy
     Dosage: LAST ADMIN 2025
     Route: 058
     Dates: end: 202506

REACTIONS (5)
  - Surgery [Unknown]
  - Muscular weakness [Not Recovered/Not Resolved]
  - Psoriatic arthropathy [Unknown]
  - Gait disturbance [Not Recovered/Not Resolved]
  - Biliary tract disorder [Not Recovered/Not Resolved]

NARRATIVE: CASE EVENT DATE: 20250701
